FAERS Safety Report 8000802-9 (Version None)
Quarter: 2011Q4

REPORT INFORMATION
  Report Type: 
  Country: None (occurrence: None)
  Receive Date: 20111222
  Receipt Date: 20111219
  Transmission Date: 20120403
  Serious: No
  Sender: FDA-Public Use
  Company Number: US-BAYER-2011-122439

PATIENT
  Age: 80 Year
  Sex: Female
  Weight: 70 kg

DRUGS (9)
  1. VITAMIN E [Concomitant]
  2. MULTIVITAMIN PREPARATION + MINERAL SUPPLEMENT [Concomitant]
  3. UNKNOWN [Concomitant]
  4. VITAMIN D [Concomitant]
  5. ALEVE (CAPLET) [Suspect]
     Indication: SCIATICA
     Dosage: 2 DF, ONCE
     Route: 048
     Dates: start: 20111219
  6. LOVAZA [Concomitant]
  7. Q10 [Concomitant]
  8. ZOLOFT [Concomitant]
  9. LEVOTHYROXINE SODIUM [Concomitant]

REACTIONS (1)
  - SCIATICA [None]
